FAERS Safety Report 14225757 (Version 1)
Quarter: 2017Q4

REPORT INFORMATION
  Report Type: Spontaneous
  Country: US (occurrence: None)
  Receive Date: 20171123
  Receipt Date: 20171123
  Transmission Date: 20180321
  Serious: No
  Sender: FDA-Public Use
  Company Number: None

PATIENT
  Age: 60 Year
  Sex: Male

DRUGS (1)
  1. CAPECITABINE 500MG WEST-WARD PHARMACEUTICAL [Suspect]
     Active Substance: CAPECITABINE
     Indication: COLON CANCER
     Route: 048
     Dates: start: 20171109

REACTIONS (5)
  - Pain in jaw [None]
  - Diarrhoea [None]
  - Lethargy [None]
  - Fatigue [None]
  - Ear pain [None]

NARRATIVE: CASE EVENT DATE: 20171109
